FAERS Safety Report 5263944-7 (Version None)
Quarter: 2007Q1

REPORT INFORMATION
  Report Type: 
  Country: None (occurrence: None)
  Receive Date: 20061213
  Receipt Date: 20051025
  Transmission Date: 20070707
  Serious: Yes (Other)
  Sender: FDA-Public Use
  Company Number: 2005UW16032

PATIENT
  Age: 60 Year
  Sex: Female

DRUGS (1)
  1. IRESSA [Suspect]
     Indication: BRONCHIOLOALVEOLAR CARCINOMA

REACTIONS (1)
  - CUTANEOUS LUPUS ERYTHEMATOSUS [None]
